FAERS Safety Report 22226650 (Version 2)
Quarter: 2023Q2

REPORT INFORMATION
  Report Type: Spontaneous
  Country: PL (occurrence: None)
  Receive Date: 20230419
  Receipt Date: 20230523
  Transmission Date: 20230722
  Serious: Yes (Other)
  Sender: FDA-Public Use
  Company Number: PL-ROCHE-3331017

PATIENT
  Age: 45 Year
  Sex: Male

DRUGS (1)
  1. EMICIZUMAB [Suspect]
     Active Substance: EMICIZUMAB
     Indication: Product used for unknown indication
     Route: 058
     Dates: start: 201706

REACTIONS (6)
  - Haemophilic arthropathy [Unknown]
  - Hepatitis C [Unknown]
  - Viral infection [Unknown]
  - Tooth extraction [Unknown]
  - Bundle branch block right [Unknown]
  - Hypertension [Unknown]

NARRATIVE: CASE EVENT DATE: 20180908
